FAERS Safety Report 9164996 (Version 3)
Quarter: 2014Q1

REPORT INFORMATION
  Report Type: Spontaneous
  Country: US (occurrence: US)
  Receive Date: 20130315
  Receipt Date: 20140320
  Transmission Date: 20141002
  Serious: Yes (Hospitalization)
  Sender: FDA-Public Use
  Company Number: US-BAYER-2013-030889

PATIENT
  Age: 20 Year
  Sex: Female
  Weight: 91.61 kg

DRUGS (6)
  1. YAZ [Suspect]
     Indication: NAUSEA
     Dosage: UNK
     Dates: start: 200805, end: 201110
  2. YAZ [Suspect]
     Indication: CONTRACEPTION
  3. YAZ [Suspect]
     Indication: ACNE
  4. GIANVI [Suspect]
     Indication: CONTRACEPTION
     Dosage: UNK
     Dates: start: 200805, end: 201110
  5. GIANVI [Suspect]
     Indication: ACNE
  6. NORCO [Concomitant]
     Indication: PAIN

REACTIONS (7)
  - Pulmonary embolism [None]
  - General physical health deterioration [None]
  - Anxiety [None]
  - Emotional distress [None]
  - Injury [None]
  - Pain [None]
  - Pain [None]
